FAERS Safety Report 14204127 (Version 1)
Quarter: 2017Q4

REPORT INFORMATION
  Report Type: Spontaneous
  Country: US (occurrence: US)
  Receive Date: 20171117
  Receipt Date: 20171117
  Transmission Date: 20180321
  Serious: Yes (Hospitalization)
  Sender: FDA-Public Use
  Company Number: None

PATIENT
  Age: 45 Year
  Sex: Female

DRUGS (13)
  1. DEXAMETHASON [Concomitant]
     Active Substance: DEXAMETHASONE
  2. CARBOPALTIN [Suspect]
     Active Substance: CARBOPLATIN
     Indication: NEOPLASM MALIGNANT
     Dosage: OTHER FREQUENCY:EVERY 3 WKS;?
     Route: 042
  3. NEULASTA [Concomitant]
     Active Substance: PEGFILGRASTIM
  4. LORAZEPAM. [Concomitant]
     Active Substance: LORAZEPAM
  5. ONDANSETRON HCL [Concomitant]
     Active Substance: ONDANSETRON HYDROCHLORIDE
  6. POTASSIUM [Concomitant]
     Active Substance: POTASSIUM
  7. PACLITAXEL. [Concomitant]
     Active Substance: PACLITAXEL
  8. NORCO [Concomitant]
     Active Substance: ACETAMINOPHEN\HYDROCODONE BITARTRATE
  9. DIPHENHYDRAMIN [Concomitant]
     Active Substance: DIPHENHYDRAMINE
  10. ALOXI [Concomitant]
     Active Substance: PALONOSETRON HYDROCHLORIDE
  11. ATIVAN [Concomitant]
     Active Substance: LORAZEPAM
  12. MAGNESIUM [Concomitant]
     Active Substance: MAGNESIUM
  13. FAMOTIDINE. [Concomitant]
     Active Substance: FAMOTIDINE

REACTIONS (4)
  - Nausea [None]
  - Hyponatraemia [None]
  - Vomiting [None]
  - Hypokalaemia [None]
